FAERS Safety Report 21347740 (Version 1)
Quarter: 2022Q3

REPORT INFORMATION
  Report Type: Spontaneous
  Country: US (occurrence: US)
  Receive Date: 20220919
  Receipt Date: 20220919
  Transmission Date: 20221027
  Serious: Yes (Other)
  Sender: FDA-Public Use
  Company Number: US-SA-SAC20220915002126

PATIENT
  Age: 59 Year
  Sex: Male

DRUGS (1)
  1. ZANTAC [Suspect]
     Active Substance: RANITIDINE HYDROCHLORIDE
     Indication: Dyspepsia
     Dosage: DOSE-UNKNOWN AT THIS TIME, QD
     Route: 048
     Dates: start: 201801, end: 202101

REACTIONS (1)
  - Pancreatic carcinoma stage IV [Not Recovered/Not Resolved]

NARRATIVE: CASE EVENT DATE: 20210930
